FAERS Safety Report 7917561-8 (Version None)
Quarter: 2011Q4

REPORT INFORMATION
  Report Type: 
  Country: None (occurrence: None)
  Receive Date: 20111116
  Receipt Date: 20111108
  Transmission Date: 20120403
  Serious: Yes (Other)
  Sender: FDA-Public Use
  Company Number: JP-JNJFOC-20100606338

PATIENT
  Age: 66 Year
  Sex: Male
  Weight: 57 kg

DRUGS (18)
  1. DIOVAN [Concomitant]
     Route: 048
  2. REMICADE [Suspect]
     Dosage: 25TH INFUSION
     Route: 042
     Dates: start: 20100304
  3. AMLODIPINE [Concomitant]
     Route: 048
     Dates: end: 20100303
  4. REMICADE [Suspect]
     Indication: RHEUMATOID ARTHRITIS
     Dosage: 21ST
     Route: 042
     Dates: start: 20090820
  5. FOLIC ACID [Concomitant]
     Indication: PROPHYLAXIS
     Route: 048
  6. ETANERCEPT [Concomitant]
     Indication: RHEUMATOID ARTHRITIS
     Route: 058
  7. PREDNISOLONE [Concomitant]
     Indication: PROPHYLAXIS
     Route: 042
     Dates: end: 20100304
  8. PREDNISOLONE [Suspect]
     Indication: PRODUCT USED FOR UNKNOWN INDICATION
     Route: 048
     Dates: start: 20091008, end: 20100408
  9. CARVEDILOL [Concomitant]
     Route: 048
  10. ALENDRONATE SODIUM [Concomitant]
     Route: 048
  11. MOBIC [Concomitant]
     Indication: RHEUMATOID ARTHRITIS
     Route: 048
  12. AMLODIPINE [Concomitant]
     Route: 048
     Dates: start: 20100304
  13. REMICADE [Suspect]
     Route: 042
     Dates: start: 20091008
  14. REMICADE [Suspect]
     Route: 042
     Dates: start: 20100114
  15. METHOTREXATE [Suspect]
     Indication: RHEUMATOID ARTHRITIS
     Route: 048
     Dates: end: 20091008
  16. REMICADE [Suspect]
     Route: 042
     Dates: start: 20091126
  17. REMICADE [Suspect]
     Dosage: 20 INFUSIONS
     Route: 042
     Dates: start: 20070124
  18. LEVOTHYROXINE SODIUM [Concomitant]
     Dosage: ^100RG^
     Route: 048

REACTIONS (3)
  - DIFFUSE LARGE B-CELL LYMPHOMA [None]
  - EPSTEIN-BARR VIRUS INFECTION [None]
  - RETINAL HAEMORRHAGE [None]
